FAERS Safety Report 7570308-X (Version None)
Quarter: 2011Q2

REPORT INFORMATION
  Report Type: 
  Country: None (occurrence: None)
  Receive Date: 20110624
  Receipt Date: 20110607
  Transmission Date: 20111010
  Serious: No
  Sender: FDA-Public Use
  Company Number: US-B.I. PHARMACEUTICALS,INC./RIDGEFIELD-2011-BP-14858BP

PATIENT
  Age: 54 Year
  Sex: Female

DRUGS (23)
  1. DEXAMETHASONE [Concomitant]
     Indication: LUNG NEOPLASM MALIGNANT
     Dosage: 4 MG
  2. NYSTATIN [Concomitant]
     Indication: ORAL FUNGAL INFECTION
     Dosage: 5 MG
  3. SPIRIVA [Concomitant]
     Indication: CHRONIC OBSTRUCTIVE PULMONARY DISEASE
     Dosage: 18 MCG
  4. FLUTICORT [Concomitant]
     Indication: HYPOTENSION
  5. ZOFRAN [Concomitant]
     Indication: IMPAIRED GASTRIC EMPTYING
  6. MIRALAX [Concomitant]
     Indication: CONSTIPATION
  7. FENTANYL [Concomitant]
     Indication: BACK PAIN
     Dosage: 75 MG
  8. ZOFRAN [Concomitant]
     Indication: NAUSEA
  9. NITROSTAT [Concomitant]
     Indication: ATRIAL FIBRILLATION
  10. OMEPRAZOLE [Concomitant]
     Indication: IMPAIRED GASTRIC EMPTYING
  11. PRADAXA [Suspect]
     Indication: ATRIAL FIBRILLATION
     Dosage: 150 MG
     Route: 048
     Dates: start: 20110527, end: 20110601
  12. MULTAQ [Concomitant]
     Indication: ATRIAL FIBRILLATION
  13. ASPIRIN [Concomitant]
     Indication: ATRIAL FIBRILLATION
     Dosage: 81 MG
  14. ASPIRIN [Concomitant]
     Indication: CARDIAC DISORDER
  15. MEGACE [Concomitant]
     Indication: DECREASED APPETITE
  16. OMEPRAZOLE [Concomitant]
     Indication: NAUSEA
  17. PREDNISONE [Concomitant]
     Indication: LUNG NEOPLASM MALIGNANT
     Dosage: 5 MG
  18. VICODIN [Concomitant]
     Indication: BACK PAIN
  19. FLUTICORT [Concomitant]
     Indication: CARDIAC DISORDER
     Dosage: 0.1 MG
  20. BUSPAR [Concomitant]
     Indication: DEPRESSION
  21. ALBUTEROL SULFATE AUTOHALER [Concomitant]
     Indication: LUNG NEOPLASM MALIGNANT
  22. LASIX [Concomitant]
     Indication: CARDIAC DISORDER
     Dosage: 20 MG
  23. ZOLOFT [Concomitant]
     Indication: DEPRESSION
     Dosage: 100 MG

REACTIONS (1)
  - VOMITING [None]
